FAERS Safety Report 25294264 (Version 2)
Quarter: 2025Q3

REPORT INFORMATION
  Report Type: Spontaneous
  Country: US (occurrence: US)
  Receive Date: 20250511
  Receipt Date: 20250712
  Transmission Date: 20251021
  Serious: No
  Sender: SANOFI AVENTIS
  Company Number: US-SA-2025SA125299

PATIENT
  Sex: Male
  Weight: 98.413 kg

DRUGS (9)
  1. DUPIXENT [Suspect]
     Active Substance: DUPILUMAB
     Indication: Dermatitis atopic
     Dosage: 300 MG, QOW
     Route: 058
  2. DUPIXENT [Suspect]
     Active Substance: DUPILUMAB
     Indication: Arthropathy
  3. DUPIXENT [Suspect]
     Active Substance: DUPILUMAB
     Indication: Psoriasis
  4. CEFDINIR [Concomitant]
     Active Substance: CEFDINIR
  5. VALTREX [Concomitant]
     Active Substance: VALACYCLOVIR HYDROCHLORIDE
  6. ALLEGRA D-12 HOUR [Concomitant]
     Active Substance: FEXOFENADINE HYDROCHLORIDE\PSEUDOEPHEDRINE HYDROCHLORIDE
  7. IBUPROFEN [Concomitant]
     Active Substance: IBUPROFEN
  8. AMOXICILLIN [Concomitant]
     Active Substance: AMOXICILLIN
  9. BIMZELX [Concomitant]
     Active Substance: BIMEKIZUMAB-BKZX

REACTIONS (3)
  - Burning sensation [Unknown]
  - Urticaria [Unknown]
  - Product use in unapproved indication [Unknown]
